FAERS Safety Report 18767186 (Version 1)
Quarter: 2021Q1

REPORT INFORMATION
  Report Type: Other
  Country: BE (occurrence: BE)
  Receive Date: 20210121
  Receipt Date: 20210121
  Transmission Date: 20210419
  Serious: Yes (Other)
  Sender: FDA-Public Use
  Company Number: BE-ROCHE-2749507

PATIENT

DRUGS (2)
  1. CEDIRANIB. [Suspect]
     Active Substance: CEDIRANIB
     Indication: COLORECTAL CANCER METASTATIC
     Route: 065
  2. BEVACIZUMAB. [Suspect]
     Active Substance: BEVACIZUMAB
     Indication: COLORECTAL CANCER METASTATIC
     Route: 065

REACTIONS (3)
  - Steatohepatitis [Unknown]
  - Nodular regenerative hyperplasia [Unknown]
  - Venoocclusive liver disease [Unknown]
